FAERS Safety Report 21190197 (Version 1)
Quarter: 2022Q3

REPORT INFORMATION
  Report Type: Spontaneous
  Country: GB (occurrence: GB)
  Receive Date: 20220809
  Receipt Date: 20220809
  Transmission Date: 20221027
  Serious: Yes (Disabling)
  Sender: FDA-Public Use
  Company Number: GB-MHRA-MED-202207291823513590-DPKVT

PATIENT
  Age: 67 Year
  Sex: Male
  Weight: 110 kg

DRUGS (3)
  1. APIXABAN [Suspect]
     Active Substance: APIXABAN
     Indication: Pulmonary embolism
     Dosage: 5 MILLIGRAM, BID (5MG  TWICE A DAY; VARIOUS  ISSUED EVERY 2 MTHS))
     Route: 065
  2. LISINOPRIL [Concomitant]
     Active Substance: LISINOPRIL
     Dosage: 30 MILLIGRAM
     Route: 065
     Dates: start: 2000
  3. ATENOLOL [Concomitant]
     Active Substance: ATENOLOL
     Dosage: 10 MILLIGRAM
     Route: 065
     Dates: start: 2000

REACTIONS (1)
  - Erectile dysfunction [Not Recovered/Not Resolved]

NARRATIVE: CASE EVENT DATE: 20211020
